FAERS Safety Report 6252288-2 (Version None)
Quarter: 2009Q3

REPORT INFORMATION
  Report Type: 
  Country: None (occurrence: None)
  Receive Date: 20090701
  Receipt Date: 20090624
  Transmission Date: 20100115
  Serious: Yes (Disabling)
  Sender: FDA-Public Use
  Company Number: US-ASTRAZENECA-2009UW17487

PATIENT
  Age: 82 Year
  Sex: Female

DRUGS (4)
  1. SYMBICORT [Suspect]
     Dosage: 160 / 4.5 2 PUFFS TWICE DAILY
     Route: 055
  2. ACCUPRIL [Concomitant]
  3. TRIAMTERENE AND HYDROCHLOROTHIAZIDE [Concomitant]
     Dosage: 37.5 / 25 MG
  4. FORADIL [Concomitant]
     Dosage: STANDARD DOSE

REACTIONS (4)
  - ASTHENIA [None]
  - BLOOD PRESSURE INCREASED [None]
  - FALL [None]
  - GAIT DISTURBANCE [None]
